FAERS Safety Report 18320121 (Version 1)
Quarter: 2020Q3

REPORT INFORMATION
  Report Type: Other
  Country: IQ (occurrence: IQ)
  Receive Date: 20200929
  Receipt Date: 20200929
  Transmission Date: 20201103
  Serious: Yes (Other)
  Sender: FDA-Public Use
  Company Number: IQ-ROCHE-2686003

PATIENT
  Age: 7 Year
  Sex: Male

DRUGS (1)
  1. ALTEPLASE. [Suspect]
     Active Substance: ALTEPLASE
     Indication: EMPYEMA
     Dosage: 0.1 MG/KG/DOSE MIXED IN 10 TO 30 ML OF NORMAL SALINE WAS INSTILLED FREQUENCY: 1, FREQUENCY UNIT: 809
     Route: 034

REACTIONS (1)
  - Drug ineffective [Unknown]
